FAERS Safety Report 5239556-8 (Version None)
Quarter: 2007Q1

REPORT INFORMATION
  Report Type: 
  Country: None (occurrence: None)
  Receive Date: 20061208
  Receipt Date: 20060515
  Transmission Date: 20070707
  Serious: Yes (Other)
  Sender: FDA-Public Use
  Company Number: 2006UW09487

PATIENT
  Age: 75 Year
  Sex: Female
  Weight: 82.553 kg

DRUGS (6)
  1. CRESTOR [Suspect]
     Indication: BLOOD CHOLESTEROL INCREASED
     Dosage: 5 MG PO
     Route: 048
     Dates: start: 20060101, end: 20060401
  2. ZETIA [Concomitant]
  3. TOPROL-XL [Concomitant]
  4. DIOVAN [Concomitant]
  5. SYNTHROID [Concomitant]
  6. ASPIRIN [Concomitant]

REACTIONS (2)
  - HEADACHE [None]
  - POOR QUALITY SLEEP [None]
